FAERS Safety Report 14021043 (Version 1)
Quarter: 2017Q3

REPORT INFORMATION
  Report Type: Spontaneous
  Country: US (occurrence: US)
  Receive Date: 20170928
  Receipt Date: 20170928
  Transmission Date: 20171128
  Serious: Yes (Hospitalization, Other)
  Sender: FDA-Public Use
  Company Number: US-ROCHE-1004674

PATIENT
  Age: 49 Year
  Sex: Female
  Weight: 83.54 kg

DRUGS (3)
  1. MEDROL [Concomitant]
     Active Substance: METHYLPREDNISOLONE
     Dosage: 8-12 MG
     Route: 065
  2. RITUXAN [Suspect]
     Active Substance: RITUXIMAB
     Indication: RHEUMATOID ARTHRITIS
     Dosage: DRUG REPORTED AS RITUXAN RA
     Route: 042
     Dates: start: 20110615, end: 20110630
  3. MEDICATION (UNK INGREDIENT) [Concomitant]
     Active Substance: UNSPECIFIED INGREDIENT

REACTIONS (5)
  - Palpitations [Unknown]
  - Drug ineffective [Unknown]
  - Dyspnoea [Unknown]
  - Fluid retention [Not Recovered/Not Resolved]
  - Swelling [None]

NARRATIVE: CASE EVENT DATE: 20110615
